FAERS Safety Report 25510495 (Version 6)
Quarter: 2025Q4

REPORT INFORMATION
  Report Type: Report from Study
  Country: BR (occurrence: BR)
  Receive Date: 20250703
  Receipt Date: 20251201
  Transmission Date: 20260118
  Serious: Yes (Other)
  Sender: NOVARTIS
  Company Number: BR-002147023-NVSC2025BR008102

PATIENT
  Age: 35 Year
  Sex: Female
  Weight: 58 kg

DRUGS (9)
  1. KISQALI [Suspect]
     Active Substance: RIBOCICLIB SUCCINATE
     Indication: Breast cancer
     Dosage: 3 DOSAGE FORM, QD (FOR 21 DAYS) (PAUSE OF 7 DAYS)
     Route: 048
     Dates: start: 20241003
  2. KISQALI [Suspect]
     Active Substance: RIBOCICLIB SUCCINATE
     Indication: Breast cancer metastatic
     Dosage: 3 DOSAGE FORM, QD (FOR 21 DAYS)
     Route: 048
     Dates: start: 20241009
  3. ZOLEDRONIC ACID [Suspect]
     Active Substance: ZOLEDRONIC ACID
     Indication: Product used for unknown indication
     Dosage: UNK
     Route: 065
  4. NOLVADEX [Concomitant]
     Active Substance: TAMOXIFEN CITRATE
     Indication: Product used for unknown indication
     Dosage: UNK
     Route: 065
  5. ANASTROZOLE [Concomitant]
     Active Substance: ANASTROZOLE
     Indication: Breast cancer metastatic
     Dosage: 1 DOSAGE FORM, QD (DAILY)
     Route: 048
     Dates: start: 20241003
  6. GOSERELIN [Concomitant]
     Active Substance: GOSERELIN
     Indication: Product used for unknown indication
     Dosage: UNK, Q3MO (INJECTION)
     Route: 058
     Dates: start: 202408
  7. GOSERELIN [Concomitant]
     Active Substance: GOSERELIN
     Indication: Breast cancer metastatic
     Dosage: 3.6 MG, QMO
     Route: 058
     Dates: start: 20241003
  8. ZOLEDRONIC ACID [Concomitant]
     Active Substance: ZOLEDRONIC ACID
     Indication: Breast cancer metastatic
     Dosage: QUARTERLY
     Route: 042
     Dates: start: 20241003
  9. Taxofen [Concomitant]
     Indication: Product used for unknown indication
     Dosage: UNK
     Route: 065

REACTIONS (9)
  - Neutropenia [Recovered/Resolved]
  - Leukopenia [Recovering/Resolving]
  - Hypoaesthesia [Recovered/Resolved]
  - Skin injury [Recovered/Resolved]
  - Skin fibrosis [Recovered/Resolved]
  - Decreased immune responsiveness [Recovered/Resolved]
  - Decreased immune responsiveness [Recovered/Resolved]
  - Influenza [Recovered/Resolved]
  - Decreased immune responsiveness [Recovering/Resolving]

NARRATIVE: CASE EVENT DATE: 20241201
